FAERS Safety Report 7373112-0 (Version None)
Quarter: 2011Q1

REPORT INFORMATION
  Report Type: 
  Country: None (occurrence: None)
  Receive Date: 20110324
  Receipt Date: 20110321
  Transmission Date: 20110831
  Serious: Yes (Hospitalization, Other)
  Sender: FDA-Public Use
  Company Number: FR-ABBOTT-11P-056-0713140-00

PATIENT
  Sex: Female

DRUGS (1)
  1. HUMIRA [Suspect]
     Indication: PSORIATIC ARTHROPATHY
     Route: 058
     Dates: start: 20101128, end: 20101218

REACTIONS (4)
  - VIITH NERVE PARALYSIS [None]
  - DYSPHORIA [None]
  - ACUTE POLYNEUROPATHY [None]
  - PARAPARESIS [None]
